FAERS Safety Report 23321522 (Version 1)
Quarter: 2023Q4

REPORT INFORMATION
  Report Type: Report from Study
  Country: US (occurrence: US)
  Receive Date: 20231220
  Receipt Date: 20231220
  Transmission Date: 20240109
  Serious: Yes (Other)
  Sender: FDA-Public Use
  Company Number: US-ABBVIE-5549219

PATIENT
  Sex: Male

DRUGS (1)
  1. HUMIRA [Suspect]
     Active Substance: ADALIMUMAB
     Indication: Ankylosing spondylitis
     Dosage: FORM STRENGTH: 40MG?CITRATE FREE
     Route: 058
     Dates: start: 20211126

REACTIONS (6)
  - Hernia [Not Recovered/Not Resolved]
  - Weight decreased [Recovering/Resolving]
  - Trigger finger [Recovering/Resolving]
  - Medical device implantation [Recovering/Resolving]
  - Carpal tunnel syndrome [Recovering/Resolving]
  - Atrial fibrillation [Unknown]

NARRATIVE: CASE EVENT DATE: 20230101
